FAERS Safety Report 9925937 (Version 1)
Quarter: 2014Q1

REPORT INFORMATION
  Report Type: Spontaneous
  Country: CN (occurrence: CN)
  Receive Date: 20140226
  Receipt Date: 20140226
  Transmission Date: 20141002
  Serious: Yes (Other)
  Sender: FDA-Public Use
  Company Number: CN-PFIZER INC-2014055759

PATIENT
  Age: 46 Year
  Sex: Female
  Weight: 60 kg

DRUGS (2)
  1. ZOLOFT [Suspect]
     Indication: ANXIETY
     Dosage: UNK
     Route: 048
     Dates: start: 2009
  2. ZOLOFT [Suspect]
     Dosage: 1 TABLET, 1X/DAY
     Route: 048

REACTIONS (3)
  - Extrasystoles [Recovering/Resolving]
  - Bradycardia [Unknown]
  - Dizziness [Unknown]
